FAERS Safety Report 7939548-1 (Version None)
Quarter: 2011Q4

REPORT INFORMATION
  Report Type: 
  Country: None (occurrence: None)
  Receive Date: 20111125
  Receipt Date: 20111122
  Transmission Date: 20120403
  Serious: Yes (Death, Disabling, Other)
  Sender: FDA-Public Use
  Company Number: IN-AMGEN-UK358535

PATIENT
  Age: 67 Year
  Sex: Male
  Weight: 47.6 kg

DRUGS (1)
  1. DARBEPOETIN ALFA [Suspect]
     Indication: CARDIAC FAILURE
     Dosage: UNK UNK, Q2WK
     Route: 058
     Dates: start: 20090727, end: 20090727

REACTIONS (5)
  - CARDIO-RESPIRATORY ARREST [None]
  - NAUSEA [None]
  - DYSPNOEA [None]
  - MYOCARDIAL INFARCTION [None]
  - TENSION [None]
